FAERS Safety Report 9746558 (Version 1)
Quarter: 2013Q4

REPORT INFORMATION
  Report Type: Spontaneous
  Country: ES (occurrence: ES)
  Receive Date: 20131211
  Receipt Date: 20131211
  Transmission Date: 20140711
  Serious: Yes (Other)
  Sender: FDA-Public Use
  Company Number: ES-ACTAVIS-2013-22740

PATIENT
  Age: 39 Year
  Sex: Female

DRUGS (1)
  1. GEMCITABIN ACTAVIS [Suspect]
     Indication: ADRENAL GLAND CANCER
     Dosage: 1660 MG, 1000 MG/M2, DAYS 1,8
     Route: 042
     Dates: start: 20131016

REACTIONS (3)
  - Alcohol poisoning [Recovered/Resolved]
  - Balance disorder [Recovered/Resolved]
  - Dizziness [Recovered/Resolved]
